FAERS Safety Report 10898495 (Version 1)
Quarter: 2015Q1

REPORT INFORMATION
  Report Type: Report from Study
  Country: US (occurrence: US)
  Receive Date: 20150309
  Receipt Date: 20150309
  Transmission Date: 20150721
  Serious: No
  Sender: FDA-Public Use
  Company Number: US-ABBVIE-14P-163-1303790-00

PATIENT
  Sex: Female
  Weight: 63.11 kg

DRUGS (2)
  1. BIRTH CONTORL (UNSPECIFIED) [Concomitant]
     Indication: NIGHT SWEATS
     Dates: start: 2014
  2. LUPRON DEPOT [Suspect]
     Active Substance: LEUPROLIDE ACETATE
     Indication: ENDOMETRIOSIS
     Route: 030
     Dates: start: 20140206

REACTIONS (2)
  - Night sweats [Not Recovered/Not Resolved]
  - Vaginal haemorrhage [Not Recovered/Not Resolved]

NARRATIVE: CASE EVENT DATE: 2014
